FAERS Safety Report 16393258 (Version 1)
Quarter: 2019Q2

REPORT INFORMATION
  Report Type: Spontaneous
  Country: US (occurrence: US)
  Receive Date: 20190605
  Receipt Date: 20190605
  Transmission Date: 20190711
  Serious: Yes (Other)
  Sender: FDA-Public Use
  Company Number: US-SA-2019SA152901

PATIENT
  Sex: Female

DRUGS (1)
  1. DUPIXENT [Suspect]
     Active Substance: DUPILUMAB
     Indication: DERMATITIS ATOPIC
     Dosage: UNK
     Dates: start: 20190401

REACTIONS (5)
  - Pruritus [Unknown]
  - Contusion [Unknown]
  - Rash papular [Unknown]
  - Erythema [Unknown]
  - Cellulitis [Unknown]

NARRATIVE: CASE EVENT DATE: 2019
